FAERS Safety Report 9860315 (Version 1)
Quarter: 2014Q1

REPORT INFORMATION
  Report Type: Spontaneous
  Country: DK (occurrence: DK)
  Receive Date: 20140201
  Receipt Date: 20140201
  Transmission Date: 20141002
  Serious: Yes (Other)
  Sender: FDA-Public Use
  Company Number: PHHY2014DK007767

PATIENT
  Sex: Female

DRUGS (8)
  1. CICLOSPORIN [Suspect]
     Indication: IMMUNOSUPPRESSION
  2. METHOTREXATE [Suspect]
     Indication: IMMUNOSUPPRESSION
  3. PREDNISOLONE [Suspect]
     Indication: IMMUNOSUPPRESSION
  4. ANTITHYMOCYTE IMMUNOGLOBULIN (HORSE) [Suspect]
     Indication: IMMUNOSUPPRESSION
     Dosage: 20 MG/KG, UNK
  5. VINCRISTINE [Suspect]
     Indication: IMMUNOSUPPRESSION
  6. DEXAMETHASONE [Suspect]
     Indication: IMMUNOSUPPRESSION
     Route: 048
  7. TACROLIMUS [Suspect]
     Indication: IMMUNOSUPPRESSION
  8. CYCLOPHOSPHAMIDE [Concomitant]
     Dosage: 120 MG/KG, UNK

REACTIONS (22)
  - Graft versus host disease in skin [Recovered/Resolved]
  - Graft versus host disease in intestine [Recovered/Resolved]
  - Graft versus host disease in liver [Recovered/Resolved]
  - Respiratory failure [Recovered/Resolved]
  - Post transplant lymphoproliferative disorder [Recovered/Resolved]
  - Pyrexia [Recovered/Resolved]
  - Abdominal pain [Recovered/Resolved]
  - Fatigue [Recovered/Resolved]
  - Weight decreased [Recovered/Resolved]
  - Splenomegaly [Recovered/Resolved]
  - Abdominal neoplasm [Recovered/Resolved]
  - Retroperitoneal mass [Recovered/Resolved]
  - Lymphadenopathy [Recovered/Resolved]
  - Radiculitis [Recovered/Resolved]
  - Epstein-Barr virus infection [Recovered/Resolved]
  - Hydronephrosis [Recovered/Resolved]
  - Blood creatinine increased [Recovered/Resolved]
  - Hypogammaglobulinaemia [Unknown]
  - Renal impairment [Unknown]
  - Toxicity to various agents [Recovered/Resolved]
  - Visual acuity reduced [Unknown]
  - Hearing impaired [Unknown]
